FAERS Safety Report 24985716 (Version 1)
Quarter: 2025Q1

REPORT INFORMATION
  Report Type: Spontaneous
  Country: US (occurrence: US)
  Receive Date: 20250219
  Receipt Date: 20250219
  Transmission Date: 20250409
  Serious: No
  Sender: BRISTOL-MYERS SQUIBB COMPANY
  Company Number: US-BRISTOL-MYERS SQUIBB COMPANY-2025-023852

PATIENT
  Age: 77 Year
  Sex: Female
  Weight: 65.32 kg

DRUGS (7)
  1. ELIQUIS [Suspect]
     Active Substance: APIXABAN
     Indication: Atrial fibrillation
     Route: 048
     Dates: start: 2015
  2. VERAPAMIL [Concomitant]
     Active Substance: VERAPAMIL HYDROCHLORIDE
     Indication: Product used for unknown indication
  3. TAMBOCOR [Concomitant]
     Active Substance: FLECAINIDE ACETATE
     Indication: Product used for unknown indication
  4. PAXIL [Concomitant]
     Active Substance: PAROXETINE HYDROCHLORIDE
     Indication: Product used for unknown indication
  5. SIMVASTATIN [Concomitant]
     Active Substance: SIMVASTATIN
     Indication: Product used for unknown indication
  6. ARIMIDEX [Concomitant]
     Active Substance: ANASTROZOLE
     Indication: Product used for unknown indication
  7. XANAX [Concomitant]
     Active Substance: ALPRAZOLAM
     Indication: Product used for unknown indication

REACTIONS (3)
  - Arthralgia [Not Recovered/Not Resolved]
  - Osteoarthritis [Not Recovered/Not Resolved]
  - Chondropathy [Not Recovered/Not Resolved]
